FAERS Safety Report 19943450 (Version 1)
Quarter: 2021Q4

REPORT INFORMATION
  Report Type: Report from Study
  Country: US (occurrence: US)
  Receive Date: 20211012
  Receipt Date: 20211012
  Transmission Date: 20220303
  Serious: Yes (Hospitalization, Other)
  Sender: FDA-Public Use
  Company Number: US-SA-2020SA109487

PATIENT
  Age: 77 Year
  Sex: Female

DRUGS (2)
  1. DUPILUMAB [Suspect]
     Active Substance: DUPILUMAB
     Indication: Dermatitis atopic
     Dosage: 300 MG, 1X
     Route: 058
     Dates: start: 20200213, end: 20200213
  2. DUPILUMAB [Suspect]
     Active Substance: DUPILUMAB
     Dosage: 300 MG, QOW
     Route: 058
     Dates: start: 20200428

REACTIONS (7)
  - Atrial fibrillation [Recovering/Resolving]
  - Weight decreased [Recovering/Resolving]
  - Nerve injury [Recovering/Resolving]
  - Taste disorder [Recovering/Resolving]
  - Cochlea implant [Unknown]
  - Erythema [Recovering/Resolving]
  - Incorrect dose administered [Unknown]

NARRATIVE: CASE EVENT DATE: 20200213
